FAERS Safety Report 8901945 (Version 1)
Quarter: 2012Q4

REPORT INFORMATION
  Report Type: Spontaneous
  Country: US (occurrence: None)
  Receive Date: 20121109
  Receipt Date: 20121109
  Transmission Date: 20130627
  Serious: No
  Sender: FDA-Public Use
  Company Number: None

PATIENT
  Age: 67 Year
  Sex: Female

DRUGS (2)
  1. CLINDAMYCIN [Suspect]
     Indication: STAB WOUND
     Dosage: 2 Caplets (capsules) twice a day for 10 days
     Dates: start: 20120525, end: 20120530
  2. CLINDAMYCIN [Suspect]
     Indication: INJURY TO FINGER NOS
     Dosage: 2 Caplets (capsules) twice a day for 10 days
     Dates: start: 20120525, end: 20120530

REACTIONS (10)
  - Abdominal discomfort [None]
  - Dysgeusia [None]
  - Nausea [None]
  - Diarrhoea [None]
  - Regurgitation [None]
  - Vomiting [None]
  - Pain [None]
  - Burning sensation [None]
  - Asthenia [None]
  - No reaction on previous exposure to drug [None]
